FAERS Safety Report 8311320-2 (Version None)
Quarter: 2012Q2

REPORT INFORMATION
  Report Type: 
  Country: None (occurrence: None)
  Receive Date: 20120425
  Receipt Date: 20111226
  Transmission Date: 20120825
  Serious: Yes (Hospitalization)
  Sender: FDA-Public Use
  Company Number: JP-GLAXOSMITHKLINE-B0772000A

PATIENT
  Sex: Female
  Weight: 35 kg

DRUGS (8)
  1. PYDOXAL [Concomitant]
     Indication: PALMAR-PLANTAR ERYTHRODYSAESTHESIA SYNDROME
     Route: 048
     Dates: start: 20100713, end: 20110228
  2. LETROZOLE [Concomitant]
     Indication: BREAST CANCER
     Dosage: 25MG PER DAY
     Route: 048
     Dates: start: 20110315, end: 20110621
  3. XELODA [Suspect]
     Indication: BREAST CANCER
     Dosage: 1800MG PER DAY
     Route: 048
     Dates: start: 20100713, end: 20110117
  4. XELODA [Suspect]
     Dosage: 2400MG PER DAY
     Route: 048
     Dates: start: 20110118, end: 20110207
  5. XELODA [Suspect]
     Dosage: 3000MG PER DAY
     Route: 048
     Dates: start: 20110208, end: 20110228
  6. TYKERB [Suspect]
     Indication: BREAST CANCER
     Dosage: 1000MG PER DAY
     Route: 048
     Dates: start: 20100713, end: 20110306
  7. MEDROXYPROGESTERONE ACETATE [Suspect]
     Indication: BREAST CANCER
     Dosage: 600MG PER DAY
     Route: 048
     Dates: start: 20110301, end: 20110306
  8. FERROUS CITRATE [Concomitant]
     Indication: ANAEMIA
     Route: 048
     Dates: start: 20101026, end: 20110620

REACTIONS (2)
  - DIARRHOEA [None]
  - HYPOKALAEMIA [None]
